FAERS Safety Report 8577669 (Version 4)
Quarter: 2013Q3

REPORT INFORMATION
  Report Type: Spontaneous
  Country: US (occurrence: None)
  Receive Date: 20120518
  Receipt Date: 20130815
  Transmission Date: 20140515
  Serious: Yes (Other)
  Sender: FDA-Public Use
  Company Number: ADR-2012-00661

PATIENT
  Sex: Male

DRUGS (3)
  1. LIORESAL [Suspect]
     Indication: MUSCLE SPASTICITY
  2. LIORESAL [Suspect]
     Indication: SPINAL CORD INJURY
  3. LIORESAL [Suspect]
     Indication: SPINAL CORD DISORDER

REACTIONS (7)
  - Muscle spasticity [None]
  - Muscle spasms [None]
  - Pruritus [None]
  - Hypertension [None]
  - Device power source issue [None]
  - Device kink [None]
  - Therapeutic response decreased [None]
